FAERS Safety Report 16117726 (Version 1)
Quarter: 2019Q1

REPORT INFORMATION
  Report Type: Report from Study
  Country: IT (occurrence: IT)
  Receive Date: 20190326
  Receipt Date: 20190326
  Transmission Date: 20190418
  Serious: Yes (Other)
  Sender: FDA-Public Use
  Company Number: IT-BAUSCH-BL-2019-008383

PATIENT
  Age: 55 Year
  Sex: Male

DRUGS (4)
  1. BUSCOPAN [Suspect]
     Active Substance: BUTYLSCOPOLAMINE BROMIDE
     Indication: ABDOMINAL PAIN
     Route: 048
     Dates: start: 20190211, end: 20190212
  2. RIFACOL [Suspect]
     Active Substance: RIFAXIMIN
     Indication: DYSENTERY
     Route: 048
     Dates: start: 20190211, end: 20190212
  3. LEVOPRAID [Concomitant]
     Indication: DEPRESSION
     Route: 048
  4. COVERLAM [Concomitant]
     Active Substance: AMLODIPINE BESYLATE\PERINDOPRIL ARGININE
     Indication: HYPERTENSION
     Dosage: 5MG/5MG
     Route: 048

REACTIONS (1)
  - Rectal haemorrhage [Not Recovered/Not Resolved]

NARRATIVE: CASE EVENT DATE: 20190212
